FAERS Safety Report 6728924-0 (Version None)
Quarter: 2010Q2

REPORT INFORMATION
  Report Type: 
  Country: None (occurrence: None)
  Receive Date: 20100517
  Receipt Date: 20100304
  Transmission Date: 20101027
  Serious: No
  Sender: FDA-Public Use
  Company Number: US-ABBOTT-10P-163-0631915-00

PATIENT
  Sex: Male
  Weight: 127.12 kg

DRUGS (12)
  1. SIMCOR [Suspect]
     Indication: HIGH DENSITY LIPOPROTEIN DECREASED
     Dosage: 500/20MG AT NIGHT
     Dates: start: 20091101, end: 20100306
  2. TESTOSTERONE [Suspect]
     Indication: BLOOD TESTOSTERONE DECREASED
     Dates: start: 20091101
  3. METOLAZONE [Suspect]
     Indication: OEDEMA PERIPHERAL
     Dates: start: 20100226, end: 20100226
  4. ASPIRIN [Concomitant]
     Indication: DRUG USE FOR UNKNOWN INDICATION
     Dosage: AT NIGHT
     Dates: start: 20091101
  5. INSULIN [Concomitant]
     Indication: DIABETES MELLITUS
     Dosage: PUMP
  6. LASIX [Concomitant]
     Indication: VASCULAR GRAFT
     Dates: start: 20100101
  7. LASIX [Concomitant]
     Indication: SWELLING
  8. POTASSIUM [Concomitant]
     Indication: VASCULAR GRAFT
  9. POTASSIUM [Concomitant]
     Indication: MINERAL SUPPLEMENTATION
  10. LISINOPRIL [Concomitant]
     Indication: HYPERTENSION
  11. PRILOSEC [Concomitant]
     Indication: GASTROOESOPHAGEAL REFLUX DISEASE
  12. METOPROLOL TARTRATE [Concomitant]
     Indication: HYPERTENSION

REACTIONS (9)
  - ANURIA [None]
  - BLOOD GLUCOSE INCREASED [None]
  - DRUG INEFFECTIVE [None]
  - FEELING HOT [None]
  - FLUSHING [None]
  - GLYCOSYLATED HAEMOGLOBIN INCREASED [None]
  - OEDEMA [None]
  - URINE OUTPUT DECREASED [None]
  - WEIGHT INCREASED [None]
